FAERS Safety Report 8450498-7 (Version None)
Quarter: 2012Q2

REPORT INFORMATION
  Report Type: 
  Country: None (occurrence: None)
  Receive Date: 20120614
  Receipt Date: 20120614
  Transmission Date: 20120825
  Serious: Yes (Other)
  Sender: FDA-Public Use
  Company Number: None

PATIENT
  Age: 58 Year
  Sex: Female
  Weight: 52.6173 kg

DRUGS (2)
  1. MELOXICAM [Suspect]
     Indication: INTERVERTEBRAL DISC PROTRUSION
     Dosage: 15 MG 1XDAY
     Dates: start: 20120608, end: 20120611
  2. MELOXICAM [Suspect]
     Indication: MULTIPLE SCLEROSIS
     Dosage: 15 MG 1XDAY
     Dates: start: 20120608, end: 20120611

REACTIONS (3)
  - NONSPECIFIC REACTION [None]
  - BURNING SENSATION [None]
  - SWELLING [None]
